FAERS Safety Report 13273999 (Version 1)
Quarter: 2017Q1

REPORT INFORMATION
  Report Type: Spontaneous
  Country: US (occurrence: US)
  Receive Date: 20170227
  Receipt Date: 20170227
  Transmission Date: 20170428
  Serious: No
  Sender: FDA-Public Use
  Company Number: US-ELI_LILLY_AND_COMPANY-US201608003626

PATIENT
  Sex: Female

DRUGS (8)
  1. DULOXETINE DR [Suspect]
     Active Substance: DULOXETINE
     Dosage: 30 MG, TWO CAPSULES EVERY MORNING
     Route: 048
  2. DULOXETINE DR [Suspect]
     Active Substance: DULOXETINE
     Dosage: 30 MG, THREE CAPSULES EACH MORNING
     Route: 048
  3. DULOXETINE DR [Suspect]
     Active Substance: DULOXETINE
     Indication: FIBROMYALGIA
     Dosage: 30 MG, EACH MORNING
     Route: 048
     Dates: start: 20140210
  4. CYMBALTA [Suspect]
     Active Substance: DULOXETINE HYDROCHLORIDE
     Indication: FIBROMYALGIA
     Dosage: UNK, UNKNOWN
     Route: 065
  5. CYMBALTA [Suspect]
     Active Substance: DULOXETINE HYDROCHLORIDE
     Dosage: 30 MG, QD
     Route: 048
  6. DULOXETINE DR [Suspect]
     Active Substance: DULOXETINE
     Dosage: 60 MG, TWO CAPSULES EVERY MORNING
     Route: 048
  7. CYMBALTA [Suspect]
     Active Substance: DULOXETINE HYDROCHLORIDE
     Indication: NEUROPATHY PERIPHERAL
     Dosage: 60 MG, UNKNOWN
     Route: 065
  8. DULOXETINE DR [Suspect]
     Active Substance: DULOXETINE
     Indication: NEUROPATHY PERIPHERAL
     Dosage: 30 MG, BID
     Route: 048

REACTIONS (19)
  - Chest pain [Unknown]
  - Nausea [Unknown]
  - Agitation [Unknown]
  - Disturbance in attention [Unknown]
  - Malaise [Unknown]
  - Lethargy [Unknown]
  - Headache [Unknown]
  - Palpitations [Unknown]
  - Depressed mood [Unknown]
  - Memory impairment [Unknown]
  - Drug withdrawal syndrome [Unknown]
  - Hyperhidrosis [Unknown]
  - Anxiety [Unknown]
  - Affect lability [Unknown]
  - Dizziness [Unknown]
  - Paraesthesia [Unknown]
  - Fatigue [Unknown]
  - Irritability [Unknown]
  - Tinnitus [Unknown]
